FAERS Safety Report 24654560 (Version 1)
Quarter: 2024Q4

REPORT INFORMATION
  Report Type: Spontaneous
  Country: IN (occurrence: IN)
  Receive Date: 20241122
  Receipt Date: 20241122
  Transmission Date: 20250115
  Serious: Yes (Hospitalization, Other)
  Sender: MEITHEAL PHARMACEUTICALS
  Company Number: IN-MEITHEAL-2024MPLIT00386

PATIENT
  Age: 65 Year
  Sex: Female

DRUGS (2)
  1. OXALIPLATIN [Suspect]
     Active Substance: OXALIPLATIN
     Indication: Rectal cancer
     Dosage: OVER 2 H ON DAY 1 OF 3 WEEKLY REGIMENS
     Route: 042
  2. CAPECITABINE [Concomitant]
     Active Substance: CAPECITABINE
     Indication: Rectal cancer
     Dosage: FOR 14 DAYS
     Route: 048

REACTIONS (1)
  - Transient ischaemic attack [Recovered/Resolved]
